FAERS Safety Report 18822997 (Version 2)
Quarter: 2021Q1

REPORT INFORMATION
  Report Type: Report from Study
  Country: US (occurrence: US)
  Receive Date: 20210201
  Receipt Date: 20210331
  Transmission Date: 20210419
  Serious: Yes (Hospitalization, Other)
  Sender: FDA-Public Use
  Company Number: US-GILEAD-2019-0420223

PATIENT
  Age: 59 Year
  Sex: Female
  Weight: 76.2 kg

DRUGS (114)
  1. PREGABALIN. [Concomitant]
     Active Substance: PREGABALIN
     Dosage: 225,MG,ONCE
     Route: 048
     Dates: start: 20190701, end: 20190701
  2. PREGABALIN. [Concomitant]
     Active Substance: PREGABALIN
     Dosage: 150,MG,TWICE DAILY
     Route: 048
     Dates: start: 20190909
  3. DEXAMETHASONE. [Concomitant]
     Active Substance: DEXAMETHASONE
     Dosage: 20,MG,ONCE
     Route: 042
     Dates: start: 20190605, end: 20190605
  4. DEXAMETHASONE. [Concomitant]
     Active Substance: DEXAMETHASONE
     Dosage: 10,MG,ONCE
     Route: 042
     Dates: start: 20190606, end: 20190606
  5. AMITRIPTYLINE [Concomitant]
     Active Substance: AMITRIPTYLINE
     Dosage: 50,MG,TWICE DAILY
     Route: 048
     Dates: start: 20190415
  6. MORPHINE [Concomitant]
     Active Substance: MORPHINE
     Dosage: 15,MG,OTHER
     Route: 048
     Dates: start: 20190619, end: 20190701
  7. POTASSIUM CHLORIDE. [Concomitant]
     Active Substance: POTASSIUM CHLORIDE
     Dosage: 20,OTHER,TWICE DAILY
     Route: 042
     Dates: start: 20190624, end: 20190624
  8. BUTALBITAL, ACETAMINOPHEN, AND CAFFEINE [Concomitant]
     Active Substance: ACETAMINOPHEN\BUTALBITAL\CAFFEINE
     Dosage: 2,OTHER,AS NECESSARY
     Route: 048
     Dates: start: 20190618, end: 20190701
  9. ZITHROMAX [Concomitant]
     Active Substance: AZITHROMYCIN DIHYDRATE
     Dosage: 250 MG, QD
     Route: 048
     Dates: start: 20201110
  10. ZOLPIDEM [Concomitant]
     Active Substance: ZOLPIDEM TARTRATE
     Dosage: 10,MG,DAILY
     Route: 048
     Dates: start: 20190613, end: 20190618
  11. ZOLPIDEM [Concomitant]
     Active Substance: ZOLPIDEM TARTRATE
     Dosage: 10,MG,ONCE
     Route: 048
     Dates: start: 20190622, end: 20190622
  12. NORMAL SALINE [Concomitant]
     Active Substance: SODIUM CHLORIDE
     Dosage: 667,OTHER,DAILY
     Route: 042
     Dates: start: 20190609, end: 20190611
  13. AMITRIPTYLINE [Concomitant]
     Active Substance: AMITRIPTYLINE
     Dosage: 10,MG,TWICE DAILY
     Route: 048
     Dates: start: 20190520, end: 20190602
  14. MORPHINE [Concomitant]
     Active Substance: MORPHINE
     Dosage: 15,MG,OTHER
     Route: 048
     Dates: start: 20190530, end: 20190530
  15. CALCIUM GLUCONATE. [Concomitant]
     Active Substance: CALCIUM GLUCONATE
     Dosage: 6.5,MG,ONCE
     Route: 042
     Dates: start: 20190528, end: 20190528
  16. MAGNESIUM OXIDE. [Concomitant]
     Active Substance: MAGNESIUM OXIDE
     Dosage: 400,MG,TWICE DAILY
     Route: 048
     Dates: start: 20190615, end: 20190615
  17. CEFEPIME [Concomitant]
     Active Substance: CEFEPIME HYDROCHLORIDE
     Dosage: 2,G,THREE TIMES DAILY
     Route: 042
     Dates: start: 20190622, end: 20190624
  18. CEFEPIME [Concomitant]
     Active Substance: CEFEPIME HYDROCHLORIDE
     Dosage: 2,G,THREE TIMES DAILY
     Route: 042
     Dates: start: 20190529, end: 20190531
  19. IOVERSOL [Concomitant]
     Active Substance: IOVERSOL
     Dosage: 125,ML,ONCE
     Route: 030
     Dates: start: 20190603, end: 20190603
  20. POTASSIUM CHLORIDE. [Concomitant]
     Active Substance: POTASSIUM CHLORIDE
     Dosage: 40,OTHER,ONCE
     Route: 048
     Dates: start: 20190616, end: 20190616
  21. POTASSIUM CHLORIDE. [Concomitant]
     Active Substance: POTASSIUM CHLORIDE
     Dosage: 40,OTHER,ONCE
     Route: 048
     Dates: start: 20190623, end: 20190623
  22. MIDODRINE [Concomitant]
     Active Substance: MIDODRINE
     Dosage: 5,MG,TWICE DAILY
     Route: 048
     Dates: start: 20190616, end: 20190616
  23. FLUDARABINE [Suspect]
     Active Substance: FLUDARABINE PHOSPHATE
     Indication: BONE MARROW CONDITIONING REGIMEN
     Dosage: 56
     Route: 042
     Dates: start: 20190609, end: 20190609
  24. FLUDARABINE [Suspect]
     Active Substance: FLUDARABINE PHOSPHATE
     Dosage: 56
     Route: 042
     Dates: start: 20190610, end: 20190610
  25. ZOLPIDEM [Concomitant]
     Active Substance: ZOLPIDEM TARTRATE
     Dosage: 10,MG,ONCE
     Route: 048
     Dates: start: 20190613, end: 20190613
  26. ACYCLOVIR [ACICLOVIR SODIUM] [Concomitant]
     Active Substance: ACYCLOVIR
     Dosage: 400,MG,DAILY
     Route: 048
     Dates: start: 20190626, end: 20190701
  27. DEXAMETHASONE. [Concomitant]
     Active Substance: DEXAMETHASONE
     Dosage: 4,MG,ONCE
     Route: 042
     Dates: start: 20190520, end: 20190520
  28. MORPHINE [Concomitant]
     Active Substance: MORPHINE
     Dosage: 15,MG,ONCE
     Route: 048
     Dates: start: 20190624, end: 20190624
  29. SENNOSIDES. [Concomitant]
     Active Substance: SENNOSIDES
     Dosage: 2,OTHER,DAILY
     Route: 048
     Dates: start: 20190618, end: 20190618
  30. ACETAMINOPHEN. [Concomitant]
     Active Substance: ACETAMINOPHEN
     Dosage: 650,MG,ONCE
     Route: 048
     Dates: start: 20190614, end: 20190614
  31. ACETAMINOPHEN. [Concomitant]
     Active Substance: ACETAMINOPHEN
     Dosage: 975,MG,ONCE
     Route: 048
     Dates: start: 20190704, end: 20190704
  32. ALPRAZOLAM. [Concomitant]
     Active Substance: ALPRAZOLAM
     Dosage: 0.5,MG,ONCE
     Route: 048
     Dates: start: 20190606, end: 20190606
  33. ALPRAZOLAM. [Concomitant]
     Active Substance: ALPRAZOLAM
     Dosage: 0.5,MG,ONCE
     Route: 048
     Dates: start: 20190618, end: 20190618
  34. DIAZEPAM. [Concomitant]
     Active Substance: DIAZEPAM
     Dosage: 5,MG,ONCE
     Route: 048
     Dates: start: 20190601, end: 20190601
  35. ALLOPURINOL. [Concomitant]
     Active Substance: ALLOPURINOL
     Dosage: 300,MG,DAILY
     Route: 048
     Dates: start: 20190609, end: 20190701
  36. DIPHENHYDRAMINE. [Concomitant]
     Active Substance: DIPHENHYDRAMINE
     Dosage: 12.5,MG,ONCE
     Route: 042
     Dates: start: 20190614, end: 20190614
  37. AXICABTAGENE CILOLEUCEL [Suspect]
     Active Substance: AXICABTAGENE CILOLEUCEL
     Indication: B-CELL LYMPHOMA
     Dosage: 68
     Route: 042
     Dates: start: 20190614, end: 20190614
  38. CYCLOPHOSPHAMIDE. [Suspect]
     Active Substance: CYCLOPHOSPHAMIDE
     Dosage: 930
     Route: 042
     Dates: start: 20190610, end: 20190610
  39. ACYCLOVIR [ACICLOVIR SODIUM] [Concomitant]
     Active Substance: ACYCLOVIR
     Dosage: 200,MG,TWICE DAILY
     Route: 048
     Dates: start: 20190520, end: 20190625
  40. ENOXAPARIN [Concomitant]
     Active Substance: ENOXAPARIN
     Dosage: 40,MG,DAILY
     Route: 058
     Dates: start: 20190529, end: 20190701
  41. NORMAL SALINE [Concomitant]
     Active Substance: SODIUM CHLORIDE
     Dosage: 100,OTHER,CONTINUOUS
     Route: 042
     Dates: start: 20190520, end: 20190523
  42. SENNOSIDES. [Concomitant]
     Active Substance: SENNOSIDES
     Dosage: 2,OTHER,DAILY
     Route: 048
     Dates: start: 20190620, end: 20190701
  43. ALPRAZOLAM. [Concomitant]
     Active Substance: ALPRAZOLAM
     Dosage: 0.5,MG,ONCE
     Route: 048
     Dates: start: 20190528, end: 20190528
  44. CEFEPIME [Concomitant]
     Active Substance: CEFEPIME HYDROCHLORIDE
     Dosage: 2,G,THREE TIMES DAILY
     Route: 042
     Dates: start: 20190615, end: 20190618
  45. CEFEPIME [Concomitant]
     Active Substance: CEFEPIME HYDROCHLORIDE
     Dosage: 2,G,ONCE
     Route: 042
     Dates: start: 20190619, end: 20190619
  46. GADOFEROL [Concomitant]
     Dosage: 8.2,ML,ONCE
     Route: 042
     Dates: start: 20190601, end: 20190601
  47. AMITRYL [Concomitant]
     Active Substance: AMITRIPTYLINE HYDROCHLORIDE
     Dosage: 10,MG,TWICE DAILY
     Route: 048
     Dates: start: 20190618, end: 20190701
  48. ONDANSETRON [Concomitant]
     Active Substance: ONDANSETRON
     Dosage: 4,MG,TWICE DAILY
     Route: 042
     Dates: start: 20190617, end: 20190617
  49. POTASSIUM CHLORIDE. [Concomitant]
     Active Substance: POTASSIUM CHLORIDE
     Dosage: 40,OTHER,ONCE
     Route: 048
     Dates: start: 20190613, end: 20190613
  50. COMPAZINE [PROCHLORPERAZINE EDISYLATE] [Concomitant]
     Active Substance: PROCHLORPERAZINE EDISYLATE
     Dosage: 10,MG,ONCE
     Route: 058
     Dates: start: 20190619, end: 20190619
  51. TOCILIZUMAB. [Concomitant]
     Active Substance: TOCILIZUMAB
     Dosage: 610,MG,DAILY
     Route: 042
     Dates: start: 20190619, end: 20190619
  52. CLONAZEPAM. [Concomitant]
     Active Substance: CLONAZEPAM
     Dosage: 0.25,MG,ONCE
     Route: 048
     Dates: start: 20190624, end: 20190624
  53. CYCLOPHOSPHAMIDE. [Suspect]
     Active Substance: CYCLOPHOSPHAMIDE
     Dosage: 930
     Route: 042
     Dates: start: 20190611, end: 20190611
  54. FLUDARABINE [Suspect]
     Active Substance: FLUDARABINE PHOSPHATE
     Dosage: 56
     Route: 042
     Dates: start: 20190611, end: 20190611
  55. ZOLPIDEM [Concomitant]
     Active Substance: ZOLPIDEM TARTRATE
     Dosage: 5,MG,DAILY
     Route: 048
     Dates: start: 20190520, end: 20190523
  56. ZOLPIDEM [Concomitant]
     Active Substance: ZOLPIDEM TARTRATE
     Dosage: 10,MG,DAILY
     Route: 048
     Dates: start: 20190523, end: 20190612
  57. ENOXAPARIN [Concomitant]
     Active Substance: ENOXAPARIN
     Dosage: 40,MG,DAILY
     Route: 058
     Dates: start: 20190520, end: 20190527
  58. DEXAMETHASONE. [Concomitant]
     Active Substance: DEXAMETHASONE
     Dosage: 10,MG,FOUR TIMES DAILY
     Route: 042
     Dates: start: 20190619, end: 20190624
  59. FLUCONAZOLE. [Concomitant]
     Active Substance: FLUCONAZOLE
     Dosage: 200,MG,DAILY
     Route: 048
     Dates: start: 20190521, end: 20190701
  60. POLYETHYLENE GLYCOL [Concomitant]
     Active Substance: POLYETHYLENE GLYCOLS
     Dosage: 17,G,TWICE DAILY
     Route: 048
     Dates: start: 20190530, end: 20190602
  61. POLYETHYLENE GLYCOL [Concomitant]
     Active Substance: POLYETHYLENE GLYCOLS
     Dosage: 17,G,ONCE
     Route: 048
     Dates: start: 20190627, end: 20190627
  62. CEFEPIME [Concomitant]
     Active Substance: CEFEPIME HYDROCHLORIDE
     Dosage: 2,MG,THREE TIMES DAILY
     Route: 042
     Dates: start: 20190529, end: 20190529
  63. AMITRYL [Concomitant]
     Active Substance: AMITRIPTYLINE HYDROCHLORIDE
     Dosage: 10,MG,ONCE
     Route: 048
     Dates: start: 20190701, end: 20190701
  64. GASTROGRAFIN [Concomitant]
     Active Substance: DIATRIZOATE MEGLUMINE\DIATRIZOATE SODIUM
     Dosage: 1080,ML,ONCE
     Route: 048
     Dates: start: 20190603, end: 20190603
  65. ONDANSETRON [Concomitant]
     Active Substance: ONDANSETRON
     Dosage: 4,MG,ONCE
     Route: 042
     Dates: start: 20190619, end: 20190619
  66. POTASSIUM CHLORIDE. [Concomitant]
     Active Substance: POTASSIUM CHLORIDE
     Dosage: 40,OTHER,ONCE
     Route: 048
     Dates: start: 20190619, end: 20190619
  67. OLANZAPINE. [Concomitant]
     Active Substance: OLANZAPINE
     Dosage: 2.5,MG,DAILY
     Route: 048
     Dates: start: 20190617, end: 20190630
  68. ZOSYN [Concomitant]
     Active Substance: PIPERACILLIN SODIUM\TAZOBACTAM SODIUM
     Dosage: 4.5,G,THREE TIMES DAILY
     Route: 042
     Dates: start: 20190619, end: 20190622
  69. LIDOCAINE. [Concomitant]
     Active Substance: LIDOCAINE
  70. ACYCLOVIR [ACICLOVIR SODIUM] [Concomitant]
     Active Substance: ACYCLOVIR
     Dosage: 200 MG, BID
     Dates: start: 20200330
  71. MORPHINE [Concomitant]
     Active Substance: MORPHINE
     Dosage: 30,MG,TWICE DAILY
     Route: 048
     Dates: start: 20190603, end: 20190619
  72. SENNOSIDES. [Concomitant]
     Active Substance: SENNOSIDES
     Dosage: 2,OTHER,DAILY
     Route: 048
     Dates: start: 20190520, end: 20190529
  73. POLYETHYLENE GLYCOL [Concomitant]
     Active Substance: POLYETHYLENE GLYCOLS
     Dosage: 17,G,TWICE DAILY
     Route: 048
     Dates: start: 20190525, end: 20190602
  74. ALPRAZOLAM. [Concomitant]
     Active Substance: ALPRAZOLAM
     Dosage: 0.5,MG,ONCE
     Route: 048
     Dates: start: 20190621, end: 20190621
  75. POTASSIUM CHLORIDE. [Concomitant]
     Active Substance: POTASSIUM CHLORIDE
     Dosage: 40,OTHER,ONCE
     Route: 048
     Dates: start: 20190621, end: 20190621
  76. GRANIX [Concomitant]
     Active Substance: TBO-FILGRASTIM
     Dosage: 480,OTHER,ONCE
     Route: 042
     Dates: start: 20190712, end: 20190712
  77. ZOLPIDEM [Concomitant]
     Active Substance: ZOLPIDEM TARTRATE
     Dosage: 10,MG,DAILY
     Route: 048
     Dates: start: 20190623, end: 20190629
  78. PREGABALIN. [Concomitant]
     Active Substance: PREGABALIN
     Dosage: 225,MG,ONCE
     Route: 048
     Dates: start: 20190627, end: 20190627
  79. PREGABALIN. [Concomitant]
     Active Substance: PREGABALIN
     Dosage: 225,MG,TWICE DAILY
     Route: 048
     Dates: start: 20190628, end: 20190630
  80. DEXAMETHASONE. [Concomitant]
     Active Substance: DEXAMETHASONE
     Dosage: 40,MG,DAILY
     Route: 042
     Dates: start: 20190530, end: 20190604
  81. MORPHINE [Concomitant]
     Active Substance: MORPHINE
     Dosage: 30,MG,AS NECESSARY
     Route: 048
     Dates: start: 20190520, end: 20190524
  82. MORPHINE [Concomitant]
     Active Substance: MORPHINE
     Dosage: 30,MG,AS NECESSARY
     Route: 048
     Dates: start: 20190524, end: 20190528
  83. MORPHINE [Concomitant]
     Active Substance: MORPHINE
     Dosage: 30,MG,OTHER
     Route: 048
     Dates: start: 20190530, end: 20190602
  84. SENNOSIDES. [Concomitant]
     Active Substance: SENNOSIDES
     Dosage: 2,OTHER,DAILY
     Route: 048
     Dates: start: 20190531, end: 20190602
  85. ESCITALOPRAM [Concomitant]
     Active Substance: ESCITALOPRAM OXALATE
     Dosage: 20,MG,DAILY
     Route: 048
     Dates: start: 20190521, end: 20190701
  86. PREGAB [Concomitant]
     Dosage: 150,MG,TWICE DAILY
     Route: 048
     Dates: start: 20190524, end: 20190623
  87. ACETAMINOPHEN. [Concomitant]
     Active Substance: ACETAMINOPHEN
     Dosage: 650,MG,FOUR TIMES DAILY
     Route: 048
     Dates: start: 20190529, end: 20190619
  88. MAGNESIUM OXIDE. [Concomitant]
     Active Substance: MAGNESIUM OXIDE
     Dosage: 400,MG,ONCE
     Route: 048
     Dates: start: 20190528, end: 20190528
  89. MAGNESIUM OXIDE. [Concomitant]
     Active Substance: MAGNESIUM OXIDE
     Dosage: 400,MG,ONCE
     Route: 048
     Dates: start: 20190610, end: 20190610
  90. AMITRYL [Concomitant]
     Active Substance: AMITRIPTYLINE HYDROCHLORIDE
     Dosage: 10,MG,TWICE DAILY
     Route: 048
     Dates: start: 20190603, end: 20190616
  91. ALLOPURINOL. [Concomitant]
     Active Substance: ALLOPURINOL
     Dosage: 300,MG,DAILY
     Route: 048
     Dates: start: 20190609, end: 20190611
  92. POTASSIUM CHLORIDE. [Concomitant]
     Active Substance: POTASSIUM CHLORIDE
     Dosage: 40,OTHER,ONCE
     Route: 048
     Dates: start: 20190615, end: 20190615
  93. POTASSIUM CHLORIDE. [Concomitant]
     Active Substance: POTASSIUM CHLORIDE
     Dosage: 40,OTHER,ONCE
     Route: 048
     Dates: start: 20190627, end: 20190627
  94. PANTOPRAZOLE [Concomitant]
     Active Substance: PANTOPRAZOLE
     Dosage: 40,MG,DAILY
     Route: 048
     Dates: start: 20190616, end: 20190701
  95. TOCILIZUMAB. [Concomitant]
     Active Substance: TOCILIZUMAB
     Dosage: 610,MG,DAILY
     Route: 042
     Dates: start: 20190617, end: 20190617
  96. GRANIX [Concomitant]
     Active Substance: TBO-FILGRASTIM
     Dosage: 480,OTHER,ONCE
     Route: 042
     Dates: start: 20190801
  97. FILGRASTIM [Concomitant]
     Active Substance: FILGRASTIM
     Dosage: 480,OTHER,DAILY
     Route: 058
     Dates: start: 20190619, end: 20190622
  98. SODIUM BICARBONATE;SODIUM CHLORIDE [Concomitant]
     Active Substance: SODIUM BICARBONATE\SODIUM CHLORIDE
  99. CYCLOPHOSPHAMIDE. [Suspect]
     Active Substance: CYCLOPHOSPHAMIDE
     Indication: BONE MARROW CONDITIONING REGIMEN
     Dosage: 930
     Route: 042
     Dates: start: 20190609, end: 20190609
  100. PREGABALIN. [Concomitant]
     Active Substance: PREGABALIN
     Dosage: 100,MG,TWICE DAILY
     Route: 048
     Dates: start: 20190520, end: 20190524
  101. PREGABALIN. [Concomitant]
     Active Substance: PREGABALIN
     Dosage: 150,MG,DAILY
     Route: 048
     Dates: start: 20190624, end: 20190626
  102. HYDROMORPHONE [Concomitant]
     Active Substance: HYDROMORPHONE
     Dosage: 1,MG,ONCE
     Route: 042
     Dates: start: 20190520, end: 20190520
  103. NORMAL SALINE [Concomitant]
     Active Substance: SODIUM CHLORIDE
     Dosage: 75,OTHER,CONTINUOUS
     Route: 042
     Dates: start: 20190529, end: 20190531
  104. SENNOSIDES. [Concomitant]
     Active Substance: SENNOSIDES
     Dosage: 2,OTHER,DAILY
     Route: 048
     Dates: start: 20190605, end: 20190616
  105. POLYETHYLENE GLYCOL [Concomitant]
     Active Substance: POLYETHYLENE GLYCOLS
     Dosage: 17,G,TWICE DAILY
     Route: 048
     Dates: start: 20190605, end: 20190613
  106. ACETAMINOPHEN. [Concomitant]
     Active Substance: ACETAMINOPHEN
     Dosage: 1000,MG,ONCE
     Route: 042
     Dates: start: 20190527, end: 20190527
  107. ACETAMINOPHEN. [Concomitant]
     Active Substance: ACETAMINOPHEN
     Dosage: 650,MG,ONCE
     Route: 048
     Dates: start: 20190619, end: 20190619
  108. NALOXONE [Concomitant]
     Active Substance: NALOXONE
     Dosage: 0.4,MG,ONCE
     Route: 042
     Dates: start: 20190529, end: 20190529
  109. ONDANSETRON [Concomitant]
     Active Substance: ONDANSETRON
     Dosage: 12,MG,DAILY
     Route: 042
     Dates: start: 20190609, end: 20190611
  110. POTASSIUM CHLORIDE. [Concomitant]
     Active Substance: POTASSIUM CHLORIDE
     Dosage: 40,OTHER,ONCE
     Route: 048
     Dates: start: 20190617, end: 20190621
  111. POTASSIUM CHLORIDE. [Concomitant]
     Active Substance: POTASSIUM CHLORIDE
     Dosage: 20,OTHER,TWICE DAILY
     Route: 042
     Dates: start: 20190626, end: 20190626
  112. POTASSIUM CHLORIDE. [Concomitant]
     Active Substance: POTASSIUM CHLORIDE
     Dosage: 40,OTHER,ONCE
     Route: 048
     Dates: start: 20190628, end: 20190628
  113. COMPAZINE [PROCHLORPERAZINE EDISYLATE] [Concomitant]
     Active Substance: PROCHLORPERAZINE EDISYLATE
     Dosage: 10,MG,ONCE
     Route: 042
     Dates: start: 20190617, end: 20190617
  114. GADOBUTROL. [Concomitant]
     Active Substance: GADOBUTROL

REACTIONS (2)
  - Anal squamous cell carcinoma [Not Recovered/Not Resolved]
  - Pain in extremity [Recovered/Resolved]

NARRATIVE: CASE EVENT DATE: 20190520
